FAERS Safety Report 24654843 (Version 1)
Quarter: 2024Q4

REPORT INFORMATION
  Report Type: Spontaneous
  Country: NL (occurrence: NL)
  Receive Date: 20241122
  Receipt Date: 20241122
  Transmission Date: 20250115
  Serious: Yes (Hospitalization, Other)
  Sender: PURDUE
  Company Number: NL-PURDUE-USA-2024-0313455

PATIENT
  Age: 17 Year
  Sex: Male

DRUGS (12)
  1. MORPHINE SULFATE [Suspect]
     Active Substance: MORPHINE SULFATE
     Indication: Anaesthesia procedure
     Dosage: 4 MILLIGRAM
     Route: 065
  2. MORPHINE SULFATE [Suspect]
     Active Substance: MORPHINE SULFATE
     Indication: Anaesthesia procedure
     Dosage: 4 MILLIGRAM
     Route: 065
  3. DIPRIVAN [Suspect]
     Active Substance: PROPOFOL
     Indication: Anaesthesia procedure
     Dosage: 290 MILLIGRAM
     Route: 065
  4. DIPRIVAN [Suspect]
     Active Substance: PROPOFOL
     Dosage: 928 MILLIGRAM (10MG/ML)
     Route: 065
  5. SUFENTANIL [Suspect]
     Active Substance: SUFENTANIL
     Indication: Anaesthesia procedure
     Dosage: 35 MICROGRAM
     Route: 065
  6. EPHEDRINE HYDROCHLORIDE [Suspect]
     Active Substance: EPHEDRINE HYDROCHLORIDE
     Indication: Anaesthesia procedure
     Dosage: 7.5 MILLIGRAM
     Route: 065
  7. ACETAMINOPHEN [Suspect]
     Active Substance: ACETAMINOPHEN
     Indication: Anaesthesia procedure
     Dosage: 1000 MILLIGRAM
     Route: 065
  8. DEXAMETHASONE [Suspect]
     Active Substance: DEXAMETHASONE
     Indication: Anaesthesia procedure
     Dosage: 4 MILLIGRAM
     Route: 065
  9. TRANEXAMIC ACID [Concomitant]
     Active Substance: TRANEXAMIC ACID
     Indication: Product used for unknown indication
     Dosage: 375 MILLIGRAM
     Route: 065
  10. CEFAZOLIN [Concomitant]
     Active Substance: CEFAZOLIN
     Indication: Product used for unknown indication
     Dosage: 1000 MILLIGRAM
     Route: 065
  11. ONDANSETRON [Concomitant]
     Active Substance: ONDANSETRON
     Indication: Product used for unknown indication
     Dosage: 4 MILLIGRAM
     Route: 065
  12. SODIUM LACTATE [Concomitant]
     Active Substance: SODIUM LACTATE
     Indication: Product used for unknown indication
     Dosage: 1000 MILLILITRE
     Route: 065

REACTIONS (3)
  - Anaesthetic complication neurological [Recovered/Resolved]
  - Language disorder [Recovered/Resolved]
  - Memory impairment [Recovered/Resolved]
